FAERS Safety Report 4804096-4 (Version None)
Quarter: 2005Q4

REPORT INFORMATION
  Report Type: 
  Country: None (occurrence: None)
  Receive Date: 20051014
  Receipt Date: 20051004
  Transmission Date: 20060501
  Serious: Yes (Hospitalization)
  Sender: FDA-Public Use
  Company Number: 234434K05USA

PATIENT
  Sex: Female

DRUGS (1)
  1. REBIF [Suspect]
     Indication: MULTIPLE SCLEROSIS
     Dosage: 44 MCG, NOT REPORTED, NOT REPORTED
     Dates: start: 20050201, end: 20050901

REACTIONS (5)
  - ABASIA [None]
  - HEPATIC ENZYME INCREASED [None]
  - INCOHERENT [None]
  - JOINT SWELLING [None]
  - MULTIPLE SCLEROSIS [None]
